FAERS Safety Report 24250757 (Version 1)
Quarter: 2024Q3

REPORT INFORMATION
  Report Type: Spontaneous
  Country: US (occurrence: US)
  Receive Date: 20240826
  Receipt Date: 20240826
  Transmission Date: 20241016
  Serious: No
  Sender: MEDEXUS PHARMA
  Company Number: US-MEDEXUS PHARMA, INC.-2023MED00273

PATIENT
  Age: 60 Year
  Sex: Female

DRUGS (21)
  1. RASUVO [Suspect]
     Active Substance: METHOTREXATE SODIUM
     Indication: Rheumatoid arthritis
     Dosage: UNK INJECTED IN ALTERNATING SIDES OF HER STOMACH OR HER THIGHS, 1X/WEEK
     Route: 058
     Dates: end: 202305
  2. RASUVO [Suspect]
     Active Substance: METHOTREXATE SODIUM
     Indication: Fibromyalgia
  3. RASUVO [Suspect]
     Active Substance: METHOTREXATE SODIUM
     Indication: Rheumatoid arthritis
     Dosage: 20 MG INJECTED IN ALTERNATING SIDES OF HER STOMACH OR HER THIGHS, 1X/WEEK
     Route: 058
     Dates: start: 202305
  4. RASUVO [Suspect]
     Active Substance: METHOTREXATE SODIUM
     Indication: Fibromyalgia
  5. ATORVASTATIN [Concomitant]
     Active Substance: ATORVASTATIN
     Dosage: 20 MG, NIGHTLY
  6. HYDROCHLOROTHIAZIDE [Concomitant]
     Active Substance: HYDROCHLOROTHIAZIDE
     Dosage: 25 MG, 1X/DAY AT NIGHT
  7. LOSARTAN [Concomitant]
     Active Substance: LOSARTAN\LOSARTAN POTASSIUM
     Dosage: 25 MG, 1X/DAY AT NIGHT
  8. FOLIC ACID [Concomitant]
     Active Substance: FOLIC ACID
  9. PREMARIN [Concomitant]
     Active Substance: ESTROGENS, CONJUGATED
     Dosage: 0.625 MG, 1X/DAY
  10. MAGNESIUM OXIDE [Concomitant]
     Active Substance: MAGNESIUM OXIDE
     Dosage: 400 MG, 1X/DAY
  11. VITAMIN D3 [Concomitant]
     Active Substance: CHOLECALCIFEROL
     Dosage: 125 ?G, 1X/DAY
  12. MONTELUKAST [Concomitant]
     Active Substance: MONTELUKAST SODIUM
     Dosage: 5 MG, 1X/DAY
  13. FAMOTIDINE [Concomitant]
     Active Substance: FAMOTIDINE
     Dosage: 1 DROP IN EACH EYE, 2X/DAY
  14. DORZOLAMIDE [Concomitant]
     Active Substance: DORZOLAMIDE
     Dosage: 22.3 MG, 2X/DAY
  15. LATANOPROST [Concomitant]
     Active Substance: LATANOPROST
     Dosage: 125 ?G, 1X/DAY
  16. COENZYME Q10 [Concomitant]
     Active Substance: DIETARY SUPPLEMENT\UBIDECARENONE
  17. DIETARY SUPPLEMENT\HERBALS\MILK THISTLE [Concomitant]
     Active Substance: MILK THISTLE
  18. MACA [LEPIDIUM MEYENII] [Concomitant]
     Dosage: 500 MG
  19. DANDELION ROOT [Concomitant]
     Dosage: 1800 MG
  20. BEET ROOT [Concomitant]
  21. MULTIVITAMIN IRON [Concomitant]

REACTIONS (11)
  - Glucose tolerance impaired [Not Recovered/Not Resolved]
  - Injection site papule [Not Recovered/Not Resolved]
  - Discomfort [Not Recovered/Not Resolved]
  - Vitamin D increased [Not Recovered/Not Resolved]
  - C-reactive protein increased [Not Recovered/Not Resolved]
  - Rash [Not Recovered/Not Resolved]
  - Rash pruritic [Not Recovered/Not Resolved]
  - Exposure via skin contact [Recovered/Resolved]
  - Product dose omission issue [Not Recovered/Not Resolved]
  - Therapeutic product effect incomplete [Recovered/Resolved]
  - Device malfunction [Not Recovered/Not Resolved]

NARRATIVE: CASE EVENT DATE: 20230701
